FAERS Safety Report 5054836-7 (Version None)
Quarter: 2006Q3

REPORT INFORMATION
  Report Type: 
  Country: None (occurrence: None)
  Receive Date: 20060717
  Receipt Date: 20060705
  Transmission Date: 20061208
  Serious: Yes (Other)
  Sender: FDA-Public Use
  Company Number: 2006083701

PATIENT
  Age: 17 Year
  Sex: Male

DRUGS (2)
  1. ZOLOFT [Suspect]
  2. CHLOROQUINE PHOSPHATE [Suspect]
     Dosage: 500 MG (1 WK)
     Dates: start: 20060101

REACTIONS (5)
  - DRUG INTERACTION [None]
  - FALL [None]
  - FATIGUE [None]
  - PANIC ATTACK [None]
  - SOMNOLENCE [None]
